FAERS Safety Report 8188503-8 (Version None)
Quarter: 2012Q1

REPORT INFORMATION
  Report Type: 
  Country: None (occurrence: None)
  Receive Date: 20120306
  Receipt Date: 20120229
  Transmission Date: 20120608
  Serious: Yes (Hospitalization, Other)
  Sender: FDA-Public Use
  Company Number: PHEH2009US00488

PATIENT
  Sex: Male

DRUGS (35)
  1. REMERON [Concomitant]
  2. ANUSOL-HC                               /USA/ [Concomitant]
  3. VELOCEF [Concomitant]
     Dosage: 250 MG, UNK
  4. SEROQUEL [Concomitant]
  5. HYTRIN [Concomitant]
  6. PREDNISONE TAB [Concomitant]
     Dosage: 20 MG, UNK
  7. REVLIMID [Concomitant]
     Dosage: 5 MG, QD
     Route: 048
  8. PREVACID [Concomitant]
     Dosage: 30 MG, BID
     Route: 048
  9. AREDIA [Suspect]
     Indication: BONE LOSS
     Dosage: 90 MG, QMO
     Dates: start: 20020101
  10. ELAVIL [Concomitant]
  11. ZOLOFT [Concomitant]
     Dosage: 50 MG, UNK
  12. ZOMETA [Suspect]
     Indication: BONE LOSS
     Dosage: 4 MG, QMO
     Dates: end: 20060401
  13. AREDIA [Suspect]
     Indication: OSTEOPOROSIS
  14. PROCRIT [Concomitant]
  15. ASPIRIN [Concomitant]
  16. PERIDEX [Concomitant]
  17. PRINIVIL [Concomitant]
  18. CARTIA XT [Concomitant]
  19. CORDARONE [Concomitant]
  20. IPRATROPIUM BROMIDE [Concomitant]
  21. LOTENSIN [Concomitant]
     Dosage: 20 MG, UNK
  22. ATIVAN [Concomitant]
  23. EFFEXOR [Concomitant]
  24. FUROSEMIDE [Concomitant]
  25. AVANDIA [Concomitant]
  26. LANTUS [Concomitant]
  27. PSYLLIUM HUSK [Concomitant]
     Dosage: 1 DF, QD
     Route: 048
  28. THALOMID [Concomitant]
     Dosage: 50 MG, QHS
  29. AMBIEN [Concomitant]
     Dosage: 10 MG, QHS
     Route: 048
  30. FLOMAX [Concomitant]
     Dosage: 0.4 MG, QHS
     Route: 048
  31. ZOMETA [Suspect]
     Indication: OSTEOPOROSIS
  32. COUMADIN [Concomitant]
  33. COUMADIN [Concomitant]
  34. NAPROXEN (ALEVE) [Concomitant]
     Dosage: 220 MG, QD
     Route: 048
  35. LYRICA [Concomitant]
     Dosage: 20 MG, QD
     Route: 048

REACTIONS (92)
  - METABOLIC ACIDOSIS [None]
  - UNRESPONSIVE TO STIMULI [None]
  - GASTROENTERITIS [None]
  - PLEURAL EFFUSION [None]
  - CATARACT [None]
  - SYNCOPE [None]
  - HYPOTHYROIDISM [None]
  - HEMIPLEGIA [None]
  - PAPULE [None]
  - DEPRESSION [None]
  - TENDERNESS [None]
  - NAUSEA [None]
  - NEOPLASM MALIGNANT [None]
  - OSTEOLYSIS [None]
  - ACTINOMYCOSIS [None]
  - CARDIOMEGALY [None]
  - BENIGN PROSTATIC HYPERPLASIA [None]
  - PULMONARY FIBROSIS [None]
  - GASTRITIS [None]
  - DYSPHAGIA [None]
  - HYPOCALCAEMIA [None]
  - PYREXIA [None]
  - MUSCULOSKELETAL PAIN [None]
  - HYPERTENSION [None]
  - INJURY [None]
  - ANXIETY [None]
  - ATELECTASIS [None]
  - ATRIAL FLUTTER [None]
  - BENIGN COLONIC NEOPLASM [None]
  - HAEMATOCHEZIA [None]
  - HYPOVOLAEMIA [None]
  - MITRAL VALVE INCOMPETENCE [None]
  - VENTRICULAR TACHYCARDIA [None]
  - BLEPHARITIS [None]
  - CELLULITIS [None]
  - PNEUMONIA [None]
  - FALL [None]
  - BRAIN INJURY [None]
  - RESPIRATORY FAILURE [None]
  - RENAL FAILURE [None]
  - RENAL CYST [None]
  - NASAL CONGESTION [None]
  - PERIPHERAL SENSORY NEUROPATHY [None]
  - ADRENAL INSUFFICIENCY [None]
  - TYPE 1 DIABETES MELLITUS [None]
  - POSTERIOR CAPSULE OPACIFICATION [None]
  - CUTIS LAXA [None]
  - ANKLE FRACTURE [None]
  - HYPOACUSIS [None]
  - HAEMATOMA [None]
  - CONSTIPATION [None]
  - NECK PAIN [None]
  - BASOSQUAMOUS CARCINOMA [None]
  - DIVERTICULUM INTESTINAL [None]
  - IRON DEFICIENCY ANAEMIA [None]
  - OSTEONECROSIS OF JAW [None]
  - UPPER RESPIRATORY TRACT INFECTION [None]
  - HERPES ZOSTER [None]
  - POST HERPETIC NEURALGIA [None]
  - MENIERE'S DISEASE [None]
  - DECREASED APPETITE [None]
  - ATRIOVENTRICULAR BLOCK FIRST DEGREE [None]
  - OPEN ANGLE GLAUCOMA [None]
  - HYPOXIA [None]
  - GENERAL PHYSICAL HEALTH DETERIORATION [None]
  - PRODUCTIVE COUGH [None]
  - LUNG INFILTRATION [None]
  - TYPE 2 DIABETES MELLITUS [None]
  - ASTHENIA [None]
  - NEPHROLITHIASIS [None]
  - VOMITING [None]
  - MULTIPLE MYELOMA [None]
  - COMPRESSION FRACTURE [None]
  - SPINAL OSTEOARTHRITIS [None]
  - INTERVERTEBRAL DISC PROTRUSION [None]
  - OSTEOMYELITIS [None]
  - RESTRICTIVE PULMONARY DISEASE [None]
  - BONE NEOPLASM MALIGNANT [None]
  - CARDIAC FAILURE CONGESTIVE [None]
  - FATIGUE [None]
  - BACTERAEMIA [None]
  - SEPTIC SHOCK [None]
  - ECCHYMOSIS [None]
  - CIRCULATORY COLLAPSE [None]
  - THROMBOCYTOPENIA [None]
  - RECTAL HAEMORRHAGE [None]
  - PAIN [None]
  - PANCYTOPENIA [None]
  - DIARRHOEA [None]
  - DEHYDRATION [None]
  - ACTINIC KERATOSIS [None]
  - OEDEMA PERIPHERAL [None]
